FAERS Safety Report 11671489 (Version 2)
Quarter: 2015Q4

REPORT INFORMATION
  Report Type: Spontaneous
  Country: US (occurrence: US)
  Receive Date: 20151028
  Receipt Date: 20151124
  Transmission Date: 20160304
  Serious: Yes (Other)
  Sender: FDA-Public Use
  Company Number: US-009507513-1510USA010234

PATIENT
  Age: 64 Year
  Sex: Male

DRUGS (2)
  1. ENTEREG [Suspect]
     Active Substance: ALVIMOPAN
     Indication: INTESTINAL RESECTION
     Dosage: 12 MG, ONCE
     Route: 048
     Dates: start: 2014
  2. METOCLOPRAMIDE. [Concomitant]
     Active Substance: METOCLOPRAMIDE

REACTIONS (1)
  - Seizure [Unknown]
